FAERS Safety Report 7702211-6 (Version None)
Quarter: 2011Q3

REPORT INFORMATION
  Report Type: 
  Country: None (occurrence: None)
  Receive Date: 20110822
  Receipt Date: 20110809
  Transmission Date: 20111222
  Serious: Yes (Hospitalization, Other)
  Sender: FDA-Public Use
  Company Number: PHHY2011US52147

PATIENT
  Sex: Male

DRUGS (2)
  1. BACLOFEN [Concomitant]
     Dosage: UNK UKN, UNK
  2. GILENYA [Suspect]
     Indication: MULTIPLE SCLEROSIS
     Dosage: 0.5 MG, QD
     Route: 048
     Dates: start: 20110330

REACTIONS (17)
  - MUSCULAR WEAKNESS [None]
  - ABSCESS ORAL [None]
  - TOOTH INFECTION [None]
  - HYPOAESTHESIA [None]
  - MUSCULOSKELETAL STIFFNESS [None]
  - PAIN IN JAW [None]
  - MULTIPLE SCLEROSIS RELAPSE [None]
  - FALL [None]
  - HEADACHE [None]
  - GAIT DISTURBANCE [None]
  - BONE DISORDER [None]
  - SEPSIS [None]
  - TOOTH ABSCESS [None]
  - SENSORY DISTURBANCE [None]
  - DISTURBANCE IN ATTENTION [None]
  - PERIORBITAL CELLULITIS [None]
  - FACIAL ASYMMETRY [None]
